FAERS Safety Report 4772387-1 (Version None)
Quarter: 2005Q3

REPORT INFORMATION
  Report Type: 
  Country: None (occurrence: None)
  Receive Date: 20050919
  Receipt Date: 20050404
  Transmission Date: 20060218
  Serious: No
  Sender: FDA-Public Use
  Company Number: US-BRISTOL-MYERS SQUIBB COMPANY-12919973

PATIENT
  Age: 30 Year
  Sex: Female
  Weight: 73 kg

DRUGS (1)
  1. KENACORT [Suspect]
     Indication: BLEPHARITIS
     Dates: start: 20050209, end: 20050209

REACTIONS (1)
  - MENSTRUATION IRREGULAR [None]
